FAERS Safety Report 17311885 (Version 1)
Quarter: 2020Q1

REPORT INFORMATION
  Report Type: Spontaneous
  Country: US (occurrence: US)
  Receive Date: 20200123
  Receipt Date: 20200123
  Transmission Date: 20200409
  Serious: No
  Sender: FDA-Public Use
  Company Number: US-NOVOPROD-694760

PATIENT
  Sex: Male

DRUGS (1)
  1. OZEMPIC [Suspect]
     Active Substance: SEMAGLUTIDE
     Indication: DIABETES MELLITUS
     Dosage: 0.25 MG
     Route: 058
     Dates: start: 20191002

REACTIONS (5)
  - Reading disorder [Unknown]
  - Vomiting [Recovered/Resolved]
  - Nausea [Unknown]
  - Taste disorder [Unknown]
  - Diarrhoea [Unknown]

NARRATIVE: CASE EVENT DATE: 201910
